FAERS Safety Report 4529309-8 (Version None)
Quarter: 2004Q4

REPORT INFORMATION
  Report Type: 
  Country: None (occurrence: None)
  Receive Date: 20041202
  Receipt Date: 20040818
  Transmission Date: 20050328
  Serious: No
  Sender: FDA-Public Use
  Company Number: 200420205BWH

PATIENT
  Age: 50 Year
  Sex: Male
  Weight: 80 kg

DRUGS (5)
  1. LEVITRA [Suspect]
     Indication: ERECTILE DYSFUNCTION
     Dosage: 20 MG, TOTAL DAILY, ORAL
     Route: 048
  2. REMICADE [Concomitant]
  3. VITAMIN B-12 [Concomitant]
  4. QUESTRAN [Concomitant]
  5. ANTI-DIARRHEAL [Concomitant]

REACTIONS (1)
  - PARAESTHESIA [None]
